FAERS Safety Report 13697033 (Version 1)
Quarter: 2017Q2

REPORT INFORMATION
  Report Type: Spontaneous
  Country: ZA (occurrence: ZA)
  Receive Date: 20170628
  Receipt Date: 20170628
  Transmission Date: 20170830
  Serious: Yes (Death)
  Sender: FDA-Public Use
  Company Number: ZA-LUPIN PHARMACEUTICALS INC.-2017-03357

PATIENT
  Sex: Female

DRUGS (4)
  1. ISOSORBIDE DINITRA [Concomitant]
     Indication: PRODUCT USED FOR UNKNOWN INDICATION
     Dosage: 10 MG, QD
     Route: 048
     Dates: start: 20161219
  2. ECOTRIN [Concomitant]
     Active Substance: ASPIRIN
     Indication: PLATELET AGGREGATION INHIBITION
     Dosage: 81 MG, QD
     Route: 048
     Dates: start: 20161219
  3. PHARMAPRESS CO [Concomitant]
     Indication: DIURETIC THERAPY
     Dosage: 20/12.5 MG, QD
     Route: 048
     Dates: start: 20161219
  4. CARVEDILOL TABLETS 12.5 MG [Suspect]
     Active Substance: CARVEDILOL
     Indication: PRODUCT USED FOR UNKNOWN INDICATION
     Dosage: 1 DF, QD
     Route: 048
     Dates: start: 20161219

REACTIONS (3)
  - Malaise [Fatal]
  - Insomnia [Fatal]
  - Dizziness [Fatal]
